FAERS Safety Report 8456410-9 (Version None)
Quarter: 2012Q2

REPORT INFORMATION
  Report Type: 
  Country: None (occurrence: None)
  Receive Date: 20120621
  Receipt Date: 20120606
  Transmission Date: 20120825
  Serious: Yes (Hospitalization)
  Sender: FDA-Public Use
  Company Number: DK-WATSON-2012-10149

PATIENT
  Sex: Male

DRUGS (1)
  1. CITALOPRAM HYDROBROMIDE [Suspect]
     Indication: DEPRESSION
     Dosage: UNK
     Route: 065
     Dates: start: 20081002, end: 20090106

REACTIONS (4)
  - AGGRESSION [None]
  - SELF INJURIOUS BEHAVIOUR [None]
  - ANXIETY [None]
  - SUICIDAL BEHAVIOUR [None]
